FAERS Safety Report 17706756 (Version 1)
Quarter: 2020Q2

REPORT INFORMATION
  Report Type: Spontaneous
  Country: US (occurrence: US)
  Receive Date: 20200424
  Receipt Date: 20200424
  Transmission Date: 20200714
  Serious: Yes (Other)
  Sender: FDA-Public Use
  Company Number: US-ELI_LILLY_AND_COMPANY-US202004005130

PATIENT
  Sex: Female

DRUGS (17)
  1. HUMULIN N [Suspect]
     Active Substance: INSULIN HUMAN
     Dosage: 11 U, DAILY (NOON)
     Route: 058
  2. NOVOLOG [Concomitant]
     Active Substance: INSULIN ASPART
     Dosage: 15 U, DAILY (NIGHT)
  3. ITRACONAZOLE. [Concomitant]
     Active Substance: ITRACONAZOLE
     Indication: PNEUMONIA
  4. HUMULIN N [Suspect]
     Active Substance: INSULIN HUMAN
     Dosage: 11 U, EACH MORNING
     Route: 058
  5. HUMULIN N [Suspect]
     Active Substance: INSULIN HUMAN
     Dosage: 11 U, EACH MORNING
     Route: 058
  6. HUMULIN N [Suspect]
     Active Substance: INSULIN HUMAN
     Indication: DIABETES MELLITUS
     Dosage: UNK, UNKNOWN
     Route: 058
  7. NOVOLOG [Concomitant]
     Active Substance: INSULIN ASPART
     Indication: DIABETES MELLITUS
     Dosage: 11 U, EACH MORNING
  8. HUMULIN N [Suspect]
     Active Substance: INSULIN HUMAN
     Dosage: 15 U, DAILY (DINNER)
     Route: 058
  9. HUMULIN N [Suspect]
     Active Substance: INSULIN HUMAN
     Dosage: 15 U, DAILY (DINNER)
     Route: 058
  10. HUMULIN N [Suspect]
     Active Substance: INSULIN HUMAN
     Indication: DIABETES MELLITUS
     Dosage: UNK UNK, UNKNOWN
     Route: 058
  11. HUMULIN N [Suspect]
     Active Substance: INSULIN HUMAN
     Indication: DIABETES MELLITUS
     Dosage: UNK UNK, UNKNOWN
     Route: 058
  12. ASPIRINE [Suspect]
     Active Substance: ASPIRIN
     Indication: PRODUCT USED FOR UNKNOWN INDICATION
     Dosage: UNK, UNKNOWN
     Route: 065
  13. TRESIBA [Concomitant]
     Active Substance: INSULIN DEGLUDEC
     Indication: DIABETES MELLITUS
  14. PREDNISONE. [Concomitant]
     Active Substance: PREDNISONE
     Indication: BRONCHOPULMONARY ASPERGILLOSIS
  15. NOVOLOG [Concomitant]
     Active Substance: INSULIN ASPART
     Dosage: 11 U, DAILY (NOON)
  16. OXYGEN. [Concomitant]
     Active Substance: OXYGEN
     Indication: BRONCHOPULMONARY ASPERGILLOSIS ALLERGIC
  17. HUMULIN N [Suspect]
     Active Substance: INSULIN HUMAN
     Dosage: 11 U, DAILY (NOON)
     Route: 058

REACTIONS (7)
  - Sleep disorder due to a general medical condition [Unknown]
  - Injection site bruising [Unknown]
  - Loss of consciousness [Unknown]
  - Fall [Unknown]
  - Blood glucose decreased [Unknown]
  - Blood glucose decreased [Recovered/Resolved]
  - Thinking abnormal [Recovered/Resolved]
